FAERS Safety Report 8338708-8 (Version None)
Quarter: 2012Q2

REPORT INFORMATION
  Report Type: 
  Country: None (occurrence: None)
  Receive Date: 20120504
  Receipt Date: 20120430
  Transmission Date: 20120825
  Serious: Yes (Other)
  Sender: FDA-Public Use
  Company Number: PHHY2012IT036985

PATIENT
  Sex: Female

DRUGS (2)
  1. FUROSEMIDE [Suspect]
  2. ENALAPRIL MALEATE [Suspect]

REACTIONS (2)
  - MALAISE [None]
  - PRESYNCOPE [None]
